FAERS Safety Report 16339100 (Version 1)
Quarter: 2019Q2

REPORT INFORMATION
  Report Type: Report from Study
  Country: US (occurrence: US)
  Receive Date: 20190521
  Receipt Date: 20190521
  Transmission Date: 20190711
  Serious: Yes (Other)
  Sender: FDA-Public Use
  Company Number: US-PFIZER INC-2019211393

PATIENT

DRUGS (3)
  1. PACLITAXEL. [Suspect]
     Active Substance: PACLITAXEL
     Indication: NON-SMALL CELL LUNG CANCER STAGE III
     Dosage: UNK, WEEKLY
  2. PEMBROLIZUMAB. [Suspect]
     Active Substance: PEMBROLIZUMAB
     Indication: NON-SMALL CELL LUNG CANCER STAGE III
     Dosage: 200 MG, EVERY 3 WEEKS (56-84 DAYS AFTER THE FIRST DAY OF CRT (2-6 WEEKS AFTER CRT END)
     Route: 042
  3. CARBOPLATIN. [Suspect]
     Active Substance: CARBOPLATIN
     Indication: NON-SMALL CELL LUNG CANCER STAGE III
     Dosage: UNK, WEEKLY

REACTIONS (1)
  - Nephritis [Unknown]
